FAERS Safety Report 7388484-0 (Version None)
Quarter: 2011Q2

REPORT INFORMATION
  Report Type: 
  Country: None (occurrence: None)
  Receive Date: 20110401
  Receipt Date: 20110329
  Transmission Date: 20111010
  Serious: Yes (Death)
  Sender: FDA-Public Use
  Company Number: PHHY2011US02845

PATIENT
  Sex: Male

DRUGS (1)
  1. RECLAST [Suspect]
     Dosage: 5 MG, UNK
     Route: 042
     Dates: start: 20100127

REACTIONS (3)
  - ADRENAL INSUFFICIENCY [None]
  - LUNG INFILTRATION [None]
  - ACQUIRED IMMUNODEFICIENCY SYNDROME [None]
